FAERS Safety Report 7000822-7 (Version None)
Quarter: 2010Q3

REPORT INFORMATION
  Report Type: 
  Country: None (occurrence: None)
  Receive Date: 20100920
  Receipt Date: 20100329
  Transmission Date: 20110219
  Serious: No
  Sender: FDA-Public Use
  Company Number: US-ASTRAZENECA-2010SE13797

PATIENT
  Age: 23247 Day
  Sex: Female
  Weight: 108 kg

DRUGS (12)
  1. SEROQUEL XR [Suspect]
     Indication: MENTAL DISORDER
     Route: 048
     Dates: start: 20070101, end: 20100328
  2. EFFEXOR XR [Concomitant]
     Indication: MENTAL DISORDER
     Route: 048
  3. EFFEXOR XR [Concomitant]
     Route: 048
  4. OXYCONTIN [Concomitant]
  5. VICODIN [Concomitant]
     Route: 048
  6. LIPITOR [Concomitant]
     Indication: BLOOD CHOLESTEROL ABNORMAL
     Dosage: DAILY
     Route: 048
  7. SPIRIVA [Concomitant]
     Indication: CHRONIC OBSTRUCTIVE PULMONARY DISEASE
  8. ADVAIR DISKUS 100/50 [Concomitant]
     Indication: CHRONIC OBSTRUCTIVE PULMONARY DISEASE
  9. PROAIR HFA [Concomitant]
     Indication: CHRONIC OBSTRUCTIVE PULMONARY DISEASE
  10. CYCLOBENZA PR [Concomitant]
  11. MUSCLE RELAXERS [Concomitant]
  12. NEBULIZER TREATMENTS [Concomitant]
     Indication: CHRONIC OBSTRUCTIVE PULMONARY DISEASE
     Dosage: PRN

REACTIONS (5)
  - CONFUSIONAL STATE [None]
  - DRUG DOSE OMISSION [None]
  - NAUSEA [None]
  - NERVOUSNESS [None]
  - TREMOR [None]
